FAERS Safety Report 5618165-2 (Version None)
Quarter: 2008Q1

REPORT INFORMATION
  Report Type: 
  Country: None (occurrence: None)
  Receive Date: 20080207
  Receipt Date: 20071026
  Transmission Date: 20080703
  Serious: No
  Sender: FDA-Public Use
  Company Number: A0690105A

PATIENT
  Age: 27 Year
  Sex: Female

DRUGS (2)
  1. PAXIL [Suspect]
     Indication: MIGRAINE
     Dosage: 40MG PER DAY
     Route: 048
     Dates: start: 20050101, end: 20071001
  2. BIRTH CONTROL PILLS [Concomitant]

REACTIONS (6)
  - DISABILITY [None]
  - DRUG ADMINISTRATION ERROR [None]
  - NAUSEA [None]
  - OFF LABEL USE [None]
  - TUNNEL VISION [None]
  - WITHDRAWAL SYNDROME [None]
